FAERS Safety Report 11073111 (Version 1)
Quarter: 2015Q2

REPORT INFORMATION
  Report Type: Spontaneous
  Country: FR (occurrence: FR)
  Receive Date: 20150428
  Receipt Date: 20150428
  Transmission Date: 20150821
  Serious: Yes (Hospitalization)
  Sender: FDA-Public Use
  Company Number: FR-TEVA-556496ISR

PATIENT
  Age: 79 Year
  Sex: Female

DRUGS (12)
  1. SIFROL 1.5 MG LP [Concomitant]
     Dosage: 1 DOSAGE FORMS DAILY; LONG-STANDING TREATMENT
     Route: 048
  2. DOMPERIDONE 10 MG [Concomitant]
     Dosage: 30 MILLIGRAM DAILY; LONG-STANDING TREATMENT, IN THE MORNING, AT MIDDAY AND IN THE EVENING
     Route: 048
  3. LAMALINE [Concomitant]
     Active Substance: ACETAMINOPHEN\CAFFEINE\OPIUM
     Dosage: LONG-STANDING TREATMENT AND MAINTENANCE TREATMENT
     Route: 048
  4. FUROSEMIDE TEVA 500 MG [Suspect]
     Active Substance: FUROSEMIDE
     Route: 048
     Dates: start: 20140919, end: 20140923
  5. AZILECT [Concomitant]
     Active Substance: RASAGILINE MESYLATE
     Dosage: 1 MILLIGRAM DAILY; LONG-STANDING TREATMENT, IN THE MORNING
     Route: 048
  6. SERESTA [Concomitant]
     Active Substance: OXAZEPAM
     Dosage: 10 MILLIGRAM DAILY; LONG-STANDING AND MAINTENANCE TREATMENT, IN THE EVENING
     Route: 048
  7. MODOPAR 200 MG/50 MG [Concomitant]
     Dosage: 3 DOSAGE FORMS DAILY; AT 07:00 A.M., 01:00 P.M. AND 07:00 P.M. LONG-STANDING TREATMENT
     Route: 048
  8. PANTOPRAZOLE SODIUM. [Concomitant]
     Active Substance: PANTOPRAZOLE SODIUM
     Dosage: 20 MILLIGRAM DAILY; LONG-STANDING AND MAINTENANCE TREATMENT, IN THE EVENING
     Route: 048
  9. MODOPAR 100 MG/25 MG DISPERSIBLE [Concomitant]
     Dosage: 3 DOSAGE FORMS DAILY; AT 07:00 A.M., 01:00 P.M. AND 07:00 P.M. LONG-STANDING TREATMENT
     Route: 048
  10. ESIDREX [Suspect]
     Active Substance: HYDROCHLOROTHIAZIDE
     Dosage: .5 DOSAGE FORMS DAILY;
     Route: 048
     Dates: start: 20140919, end: 20140923
  11. HYPERIUM [Concomitant]
     Active Substance: RILMENIDINE PHOSPHATE
     Indication: HYPERTENSION
     Dosage: 1 MILLIGRAM DAILY;
     Dates: start: 20140919, end: 20140923
  12. COVERSYL [Suspect]
     Active Substance: PERINDOPRIL
     Indication: HYPERTENSION
     Dosage: 10 MILLIGRAM DAILY;
     Route: 048
     Dates: start: 20140919, end: 20140923

REACTIONS (3)
  - Acute kidney injury [Recovering/Resolving]
  - Blood creatinine increased [Recovering/Resolving]
  - Asthenia [Recovering/Resolving]

NARRATIVE: CASE EVENT DATE: 20140923
